FAERS Safety Report 8484080-2 (Version None)
Quarter: 2012Q3

REPORT INFORMATION
  Report Type: 
  Country: None (occurrence: None)
  Receive Date: 20120703
  Receipt Date: 20120621
  Transmission Date: 20120928
  Serious: Yes (Other)
  Sender: FDA-Public Use
  Company Number: JP-ELI_LILLY_AND_COMPANY-JP201206007517

PATIENT
  Age: 71 Year
  Sex: Female

DRUGS (4)
  1. VITAMIN B-12 [Concomitant]
  2. ALIMTA [Suspect]
     Route: 042
  3. CARBOPLATIN [Concomitant]
  4. FOLIC ACID [Concomitant]

REACTIONS (2)
  - CEREBELLAR INFARCTION [None]
  - BONE MARROW FAILURE [None]
